FAERS Safety Report 15397613 (Version 1)
Quarter: 2018Q3

REPORT INFORMATION
  Report Type: Spontaneous
  Country: US (occurrence: US)
  Receive Date: 20180911
  Receipt Date: 20180911
  Transmission Date: 20181010
  Serious: Yes (Hospitalization)
  Sender: FDA-Public Use
  Company Number: None

PATIENT
  Age: 62 Year
  Sex: Female

DRUGS (15)
  1. BIOTENE NOS [Concomitant]
     Active Substance: CETYLPYRIDINIUM CHLORIDE OR SODIUM FLUORIDE OR SODIUM MONOFLUOROPHOSPHATE OR GLUCOSE OXIDASE\LACTOFERRIN\LACTOPEROXIDASE BOVINE\LYSOZYME
  2. OXYCODONE [Concomitant]
     Active Substance: OXYCODONE
  3. LORAZEPAM. [Concomitant]
     Active Substance: LORAZEPAM
  4. VITAMIN D3 [Concomitant]
     Active Substance: CHOLECALCIFEROL
  5. LEVOTHYROXINE. [Concomitant]
     Active Substance: LEVOTHYROXINE
  6. TURMERIC [Concomitant]
     Active Substance: HERBALS\TURMERIC
  7. ZOLPIDEM [Concomitant]
     Active Substance: ZOLPIDEM\ZOLPIDEM TARTRATE
  8. TRAMADOL. [Concomitant]
     Active Substance: TRAMADOL
  9. HUMIRA [Suspect]
     Active Substance: ADALIMUMAB
     Indication: RHEUMATOID ARTHRITIS
     Route: 058
     Dates: start: 201602
  10. FLUTICASOONO [Concomitant]
  11. DULOXETINE. [Concomitant]
     Active Substance: DULOXETINE
  12. DAILY VIT [Concomitant]
  13. VITAMIN E [Concomitant]
     Active Substance: .ALPHA.-TOCOPHEROL
  14. HYDROXYCLOR [Concomitant]
  15. CALCIUM CARB [Concomitant]
     Active Substance: CALCIUM CARBONATE

REACTIONS (2)
  - Knee operation [None]
  - Drug dose omission [None]
